FAERS Safety Report 6058852-8 (Version None)
Quarter: 2009Q1

REPORT INFORMATION
  Report Type: 
  Country: None (occurrence: None)
  Receive Date: 20090130
  Receipt Date: 20090122
  Transmission Date: 20090719
  Serious: Yes (Other)
  Sender: FDA-Public Use
  Company Number: US-GENENTECH-268475

PATIENT
  Sex: Male
  Weight: 66.2 kg

DRUGS (4)
  1. AVASTIN [Suspect]
     Indication: MYELODYSPLASTIC SYNDROME
     Dosage: 88 MG, UNK
     Route: 058
     Dates: start: 20080920
  2. KYTRIL [Concomitant]
     Indication: DRUG USE FOR UNKNOWN INDICATION
     Dosage: 1 MG, UNK
     Dates: start: 20080921, end: 20080921
  3. TYLENOL [Concomitant]
     Indication: DRUG USE FOR UNKNOWN INDICATION
     Dosage: 650 MG, PRN
  4. MS 275 [Concomitant]
     Indication: DRUG USE FOR UNKNOWN INDICATION

REACTIONS (4)
  - ECCHYMOSIS [None]
  - INJECTION SITE HAEMORRHAGE [None]
  - MEDICATION ERROR [None]
  - WRONG DRUG ADMINISTERED [None]
